FAERS Safety Report 16715951 (Version 1)
Quarter: 2019Q3

REPORT INFORMATION
  Report Type: Spontaneous
  Country: CR (occurrence: CR)
  Receive Date: 20190817
  Receipt Date: 20190817
  Transmission Date: 20191005
  Serious: Yes (Other)
  Sender: FDA-Public Use
  Company Number: None

PATIENT
  Age: 33 Year
  Sex: Female
  Weight: 70 kg

DRUGS (2)
  1. DERMOVATE [Suspect]
     Active Substance: CLOBETASOL
     Indication: ECZEMA
     Route: 061
     Dates: start: 20160801, end: 20190718
  2. DERMOVATE [Suspect]
     Active Substance: CLOBETASOL
     Indication: DERMATITIS
     Route: 061
     Dates: start: 20160801, end: 20190718

REACTIONS (2)
  - Steroid withdrawal syndrome [None]
  - Insomnia [None]

NARRATIVE: CASE EVENT DATE: 20190601
